FAERS Safety Report 17225826 (Version 2)
Quarter: 2020Q4

REPORT INFORMATION
  Report Type: Report from Study
  Country: DE (occurrence: DE)
  Receive Date: 20200102
  Receipt Date: 20201015
  Transmission Date: 20210113
  Serious: Yes (Hospitalization)
  Sender: FDA-Public Use
  Company Number: DE-MYLANLABS-2019M1131645

PATIENT
  Age: 57 Year
  Sex: Female

DRUGS (6)
  1. ENBREL [Suspect]
     Active Substance: ETANERCEPT
     Indication: PRODUCT USED FOR UNKNOWN INDICATION
     Dosage: 50 MG, WEEKLY
  2. FOLSAN [Concomitant]
     Active Substance: FOLIC ACID
     Dosage: UNK
  3. PANTOPRAZOLE [Concomitant]
     Active Substance: PANTOPRAZOLE
     Dosage: UNK
  4. DEKRISTOL [Concomitant]
     Active Substance: CHOLECALCIFEROL
     Dosage: UNK
  5. METHOTREXATE. [Suspect]
     Active Substance: METHOTREXATE
     Indication: PRODUCT USED FOR UNKNOWN INDICATION
     Dosage: 20 MG, WEEKLY
  6. DECORTIN [Concomitant]
     Active Substance: PREDNISONE
     Dosage: UNK

REACTIONS (1)
  - Synovial cyst [Not Recovered/Not Resolved]

NARRATIVE: CASE EVENT DATE: 20190906
